FAERS Safety Report 8275564-0 (Version None)
Quarter: 2012Q2

REPORT INFORMATION
  Report Type: 
  Country: None (occurrence: None)
  Receive Date: 20120412
  Receipt Date: 20120405
  Transmission Date: 20120825
  Serious: Yes (Disabling, Other)
  Sender: FDA-Public Use
  Company Number: AT-BIOGENIDEC-2011BI016198

PATIENT
  Age: 42 Year
  Sex: Female

DRUGS (1)
  1. TYSABRI [Suspect]
     Indication: MULTIPLE SCLEROSIS
     Route: 042
     Dates: start: 20110131, end: 20110401

REACTIONS (7)
  - PROGRESSIVE MULTIPLE SCLEROSIS [None]
  - LYMPHOMA [None]
  - EJECTION FRACTION DECREASED [None]
  - ATELECTASIS [None]
  - BEDRIDDEN [None]
  - MENTAL DISORDER DUE TO A GENERAL MEDICAL CONDITION [None]
  - LUNG DISORDER [None]
